FAERS Safety Report 4863758-3 (Version None)
Quarter: 2005Q4

REPORT INFORMATION
  Report Type: 
  Country: None (occurrence: None)
  Receive Date: 20051222
  Receipt Date: 20050729
  Transmission Date: 20060501
  Serious: No
  Sender: FDA-Public Use
  Company Number: US-GLAXOSMITHKLINE-A0568529A

PATIENT
  Age: 38 Year
  Sex: Female
  Weight: 58.6 kg

DRUGS (4)
  1. FLONASE [Suspect]
     Indication: DRUG USE FOR UNKNOWN INDICATION
     Route: 045
     Dates: start: 20050412, end: 20050601
  2. ADVAIR DISKUS 250/50 [Concomitant]
     Route: 055
  3. ZYRTEC [Concomitant]
  4. BIRTH CONTROL [Concomitant]

REACTIONS (1)
  - RHINITIS [None]
